FAERS Safety Report 18819095 (Version 1)
Quarter: 2021Q1

REPORT INFORMATION
  Report Type: Spontaneous
  Country: FR (occurrence: FR)
  Receive Date: 20210201
  Receipt Date: 20210201
  Transmission Date: 20210419
  Serious: Yes (Hospitalization)
  Sender: FDA-Public Use
  Company Number: FR-MYLANLABS-2021M1005712

PATIENT
  Age: 48 Year
  Sex: Male
  Weight: 85 kg

DRUGS (3)
  1. DIAZEPAM ARROW [Suspect]
     Active Substance: DIAZEPAM
     Indication: ANXIETY
     Dosage: 30 MILLIGRAM
     Route: 048
     Dates: start: 20201115, end: 20201121
  2. MIRTAZAPINE. [Suspect]
     Active Substance: MIRTAZAPINE
     Indication: DEPRESSION
     Dosage: 30 MILLIGRAM, QD
     Route: 048
     Dates: start: 20201115, end: 20201120
  3. TERCIAN                            /00759302/ [Suspect]
     Active Substance: CYAMEMAZINE
     Indication: DEPRESSION
     Dosage: 850 MILLIGRAM, EVERY 7 DAY
     Route: 048
     Dates: start: 20201115, end: 20201120

REACTIONS (1)
  - Myocarditis [Recovering/Resolving]

NARRATIVE: CASE EVENT DATE: 20201120
